FAERS Safety Report 14339362 (Version 1)
Quarter: 2017Q4

REPORT INFORMATION
  Report Type: Spontaneous
  Country: FR (occurrence: FR)
  Receive Date: 20171230
  Receipt Date: 20171230
  Transmission Date: 20180321
  Serious: Yes (Other)
  Sender: FDA-Public Use
  Company Number: FR-AUROBINDO-AUR-APL-2017-47767

PATIENT
  Age: 24 Year
  Sex: Female
  Weight: 45 kg

DRUGS (1)
  1. KETOPROFEN. [Suspect]
     Active Substance: KETOPROFEN
     Indication: BACK PAIN
     Dosage: IN TOTAL
     Route: 048
     Dates: start: 20171113

REACTIONS (6)
  - Diarrhoea [Unknown]
  - Delirium [Unknown]
  - Accidental overdose [Unknown]
  - Nausea [Unknown]
  - Faeces discoloured [Unknown]
  - Oliguria [Unknown]

NARRATIVE: CASE EVENT DATE: 20171113
